FAERS Safety Report 14564385 (Version 1)
Quarter: 2018Q1

REPORT INFORMATION
  Report Type: Spontaneous
  Country: US (occurrence: US)
  Receive Date: 20180222
  Receipt Date: 20180222
  Transmission Date: 20180509
  Serious: No
  Sender: FDA-Public Use
  Company Number: US-VERNALIS THERAPEUTICS, INC.-2017VRN00012

PATIENT
  Sex: Female
  Weight: 49.89 kg

DRUGS (1)
  1. MOXATAG [Suspect]
     Active Substance: AMOXICILLIN
     Indication: ANIMAL BITE
     Dosage: 500 MG, 3X/DAY
     Route: 048
     Dates: start: 2013, end: 2013

REACTIONS (2)
  - Drug hypersensitivity [Recovered/Resolved]
  - Eye swelling [Recovered/Resolved]

NARRATIVE: CASE EVENT DATE: 2013
